FAERS Safety Report 21078215 (Version 1)
Quarter: 2022Q3

REPORT INFORMATION
  Report Type: Report from Study
  Country: US (occurrence: US)
  Receive Date: 20220713
  Receipt Date: 20220713
  Transmission Date: 20221027
  Serious: No
  Sender: FDA-Public Use
  Company Number: US-VANDA PHARMACEUTICALS, INC-2021TASUS005516

PATIENT
  Age: 46 Year
  Sex: Male
  Weight: 87.982 kg

DRUGS (3)
  1. HETLIOZ [Suspect]
     Active Substance: TASIMELTEON
     Indication: Non-24-hour sleep-wake disorder
     Dosage: 20 MILLIGRAM, QHS, AT THE SAME TIME EACH NIGHT 1 HOUR BEFORE BEDTIME, WITHOUT FOOD.
     Route: 048
     Dates: start: 20211021, end: 20220118
  2. REMERON [Concomitant]
     Active Substance: MIRTAZAPINE
     Indication: Product used for unknown indication
  3. ALPRAZOLAM [Concomitant]
     Active Substance: ALPRAZOLAM
     Indication: Product used for unknown indication

REACTIONS (3)
  - Rhinorrhoea [Recovered/Resolved]
  - Chromaturia [Recovered/Resolved]
  - Drug ineffective [Recovered/Resolved]

NARRATIVE: CASE EVENT DATE: 20211207
